FAERS Safety Report 4478615-4 (Version None)
Quarter: 2004Q4

REPORT INFORMATION
  Report Type: 
  Country: None (occurrence: None)
  Receive Date: 20041019
  Receipt Date: 20041008
  Transmission Date: 20050328
  Serious: Yes (Death, Life-Threatening)
  Sender: FDA-Public Use
  Company Number: 200413785FR

PATIENT
  Age: 72 Year
  Sex: Female

DRUGS (7)
  1. LASILIX 40 MG [Suspect]
     Indication: CARDIAC FAILURE
     Route: 048
  2. ZYLORIC [Suspect]
     Route: 048
     Dates: start: 20040715, end: 20040802
  3. MIXTARD HUMAN 70/30 [Concomitant]
     Indication: DIABETES MELLITUS
  4. DIGOXIN [Concomitant]
     Indication: CARDIAC FAILURE
  5. LEVOTHYROX [Concomitant]
     Route: 048
  6. COZAAR [Concomitant]
     Route: 048
  7. ACTRAPID [Concomitant]

REACTIONS (20)
  - CARDIAC ARREST [None]
  - DEATH [None]
  - ENANTHEMA [None]
  - EXANTHEM [None]
  - FACE OEDEMA [None]
  - HAEMOLYSIS [None]
  - HEPATIC FAILURE [None]
  - HYPERSENSITIVITY [None]
  - LEG AMPUTATION [None]
  - LEUKOCYTOCLASTIC VASCULITIS [None]
  - METABOLIC ACIDOSIS [None]
  - MULTI-ORGAN FAILURE [None]
  - MYDRIASIS [None]
  - PRURITUS [None]
  - PUPILLARY DISORDER [None]
  - RENAL FAILURE [None]
  - RESPIRATORY DISTRESS [None]
  - SEPSIS [None]
  - SHOCK [None]
  - SKIN BLEEDING [None]
